FAERS Safety Report 23726160 (Version 1)
Quarter: 2024Q2

REPORT INFORMATION
  Report Type: Spontaneous
  Country: US (occurrence: US)
  Receive Date: 20240410
  Receipt Date: 20240410
  Transmission Date: 20240716
  Serious: Yes (Other)
  Sender: FDA-Public Use
  Company Number: US-SANOFI-02004893

PATIENT
  Sex: Female

DRUGS (1)
  1. DUPIXENT [Suspect]
     Active Substance: DUPILUMAB
     Indication: Asthma
     Dosage: 600 MG, 1X

REACTIONS (5)
  - Flushing [Unknown]
  - Paraesthesia [Unknown]
  - Chest discomfort [Unknown]
  - Nausea [Unknown]
  - Dysphonia [Unknown]
